FAERS Safety Report 4460280-3 (Version None)
Quarter: 2004Q3

REPORT INFORMATION
  Report Type: 
  Country: None (occurrence: None)
  Receive Date: 20040928
  Receipt Date: 20040326
  Transmission Date: 20050211
  Serious: No
  Sender: FDA-Public Use
  Company Number: US-BRISTOL-MYERS SQUIBB COMPANY-12543799

PATIENT
  Age: 18 Year
  Sex: Male
  Weight: 53 kg

DRUGS (1)
  1. SUMYCIN [Suspect]
     Indication: ACNE
     Route: 048
     Dates: start: 20010212, end: 20030301

REACTIONS (14)
  - ABDOMINAL PAIN UPPER [None]
  - ABNORMAL FAECES [None]
  - BACTERIAL INFECTION [None]
  - DEPRESSION [None]
  - DIARRHOEA [None]
  - FEELING ABNORMAL [None]
  - FLATULENCE [None]
  - INCONTINENCE [None]
  - IRRITABLE BOWEL SYNDROME [None]
  - SKIN ODOUR ABNORMAL [None]
  - TOOTH DISCOLOURATION [None]
  - TOOTH EROSION [None]
  - WEIGHT DECREASED [None]
  - WEIGHT GAIN POOR [None]
